FAERS Safety Report 6670921-8 (Version None)
Quarter: 2010Q2

REPORT INFORMATION
  Report Type: 
  Country: None (occurrence: None)
  Receive Date: 20100407
  Receipt Date: 20100329
  Transmission Date: 20101027
  Serious: Yes (Hospitalization, Other)
  Sender: FDA-Public Use
  Company Number: US-ASTRAZENECA-2010SE13721

PATIENT
  Age: 40 Year
  Sex: Male
  Weight: 102.1 kg

DRUGS (9)
  1. CRESTOR [Suspect]
     Route: 048
     Dates: start: 20050101
  2. ALTACE [Concomitant]
  3. FLEXERIL [Concomitant]
  4. SINGULAIR [Concomitant]
  5. FLOMAX [Concomitant]
  6. LEVITRA [Concomitant]
  7. COMBIVENT [Concomitant]
  8. XANAX [Concomitant]
  9. SEROQUEL [Concomitant]
     Route: 048
     Dates: start: 20060101

REACTIONS (2)
  - CEREBROVASCULAR ACCIDENT [None]
  - MYOCARDIAL INFARCTION [None]
